FAERS Safety Report 19307722 (Version 1)
Quarter: 2021Q2

REPORT INFORMATION
  Report Type: Spontaneous
  Country: US (occurrence: US)
  Receive Date: 20210525
  Receipt Date: 20210525
  Transmission Date: 20210717
  Serious: Yes (Life-Threatening, Other)
  Sender: FDA-Public Use
  Company Number: US-PURDUE PHARMA-USA-2021-0215118

PATIENT
  Age: 56 Year
  Sex: Female

DRUGS (7)
  1. OXYCODONE HYDROCHLORIDE (SIMILAR TO NDA 22?272) [Suspect]
     Active Substance: OXYCODONE HYDROCHLORIDE
     Indication: CERVICAL RADICULOPATHY
     Dosage: 10 MG, UNK
     Route: 048
     Dates: start: 20201221
  2. DIAZEPAM. [Concomitant]
     Active Substance: DIAZEPAM
     Indication: BREAKTHROUGH PAIN
  3. OXYCODONE HYDROCHLORIDE (SIMILAR TO NDA 22?272) [Suspect]
     Active Substance: OXYCODONE HYDROCHLORIDE
     Indication: BREAKTHROUGH PAIN
  4. BACLOFEN. [Concomitant]
     Active Substance: BACLOFEN
     Indication: CERVICAL RADICULOPATHY
     Dosage: UNK
     Route: 065
     Dates: start: 1990
  5. GABAPENTIN. [Concomitant]
     Active Substance: GABAPENTIN
     Indication: CERVICAL RADICULOPATHY
     Dosage: UNK
     Route: 065
     Dates: start: 201906
  6. TYLENOL WITH CODEINE [Suspect]
     Active Substance: ACETAMINOPHEN\CODEINE PHOSPHATE
     Indication: CERVICAL RADICULOPATHY
     Dosage: 300/30 MG, UNK
     Route: 048
     Dates: start: 1995
  7. DIAZEPAM. [Concomitant]
     Active Substance: DIAZEPAM
     Indication: CERVICAL RADICULOPATHY
     Dosage: UNK
     Route: 065
     Dates: start: 20210101

REACTIONS (9)
  - Overdose [Recovered/Resolved]
  - Injection site pain [Not Recovered/Not Resolved]
  - Medication error [Unknown]
  - Somnolence [Unknown]
  - Dry mouth [Unknown]
  - Fatigue [Not Recovered/Not Resolved]
  - Skin laceration [Unknown]
  - Coordination abnormal [Unknown]
  - Dysarthria [Unknown]

NARRATIVE: CASE EVENT DATE: 20210205
